FAERS Safety Report 20256079 (Version 3)
Quarter: 2022Q2

REPORT INFORMATION
  Report Type: Spontaneous
  Country: GB (occurrence: GB)
  Receive Date: 20211230
  Receipt Date: 20220629
  Transmission Date: 20220721
  Serious: Yes (Hospitalization)
  Sender: FDA-Public Use
  Company Number: GB-JNJFOC-20211256080

PATIENT
  Age: 72 Year
  Sex: Male

DRUGS (18)
  1. SIMPONI [Suspect]
     Active Substance: GOLIMUMAB
     Indication: Ankylosing spondylitis
     Route: 058
  2. SIMPONI [Suspect]
     Active Substance: GOLIMUMAB
     Indication: Psoriatic arthropathy
  3. CLOPIDOGREL [Suspect]
     Active Substance: CLOPIDOGREL BISULFATE
     Indication: Product used for unknown indication
     Dosage: LAST ISSUED ON 16-MAR-2022
     Route: 065
  4. COVID-19 VACCINE [Concomitant]
     Route: 030
  5. COVID-19 VACCINE [Concomitant]
     Route: 030
     Dates: start: 20210401
  6. DICLOFENAC DIETHYLAMINE [Concomitant]
     Active Substance: DICLOFENAC DIETHYLAMINE
     Indication: Arthralgia
     Dosage: LAST ADMINISTERED ON 16-MAR-2022
  7. CARVEDILOL [Concomitant]
     Active Substance: CARVEDILOL
     Dosage: LAST ADMINISTERED ON 16-MAR-2022
  8. ALBUTEROL [Concomitant]
     Active Substance: ALBUTEROL
     Dosage: 1*200 DOSE LAST ADMINISTERED ON 16-MAR-2022
  9. CHOLECALCIFEROL [Concomitant]
     Active Substance: CHOLECALCIFEROL
     Dosage: LAST ADMINISTERED ON 16-MAR-2022
  10. LINAGLIPTIN [Concomitant]
     Active Substance: LINAGLIPTIN
     Dosage: LAST ADMINISTERED ON 16-MAR-2022
     Route: 065
  11. SILDENAFIL [Concomitant]
     Active Substance: SILDENAFIL
     Dosage: LAST ADMINISTERED ON 16-MAR-2022
     Route: 065
  12. ATORVASTATIN [Concomitant]
     Active Substance: ATORVASTATIN
     Dosage: LAST ADMINISTERED ON 16-MAR-2022
  13. GLICLAZIDE [Concomitant]
     Active Substance: GLICLAZIDE
     Dosage: LAST ADMINISTERED ON 16-MAR-2022, TWO TABLET WITH BREAKFAST AND TWO WITH EVENING MEAL
     Route: 065
  14. METFORMIN [Concomitant]
     Active Substance: METFORMIN HYDROCHLORIDE
     Dosage: LAST ADMINISTERED ON 16-MAR-2022
     Route: 065
  15. LOPERAMIDE [Concomitant]
     Active Substance: LOPERAMIDE
     Dosage: LAST ADMINISTERED ON 20-JAN-2022
     Route: 065
  16. SALICYLIC ACID [Concomitant]
     Active Substance: SALICYLIC ACID
  17. ANORO ELLIPTA [Concomitant]
     Active Substance: UMECLIDINIUM BROMIDE\VILANTEROL TRIFENATATE
  18. EXOREX [Concomitant]
     Active Substance: COAL TAR

REACTIONS (3)
  - Oesophageal varices haemorrhage [Recovered/Resolved]
  - Off label use [Unknown]
  - Product use issue [Unknown]

NARRATIVE: CASE EVENT DATE: 20211213
